FAERS Safety Report 17006524 (Version 1)
Quarter: 2019Q4

REPORT INFORMATION
  Report Type: Spontaneous
  Country: US (occurrence: US)
  Receive Date: 20191107
  Receipt Date: 20191107
  Transmission Date: 20200122
  Serious: No
  Sender: FDA-Public Use
  Company Number: US-TEVA-2019-US-1131861

PATIENT

DRUGS (2)
  1. SOLIFENACIN SUCCINATE TEVA [Suspect]
     Active Substance: SOLIFENACIN SUCCINATE
     Route: 065
  2. SOLIFENACIN SUCCINATE AJANTA PHARMACEUTICALS [Suspect]
     Active Substance: SOLIFENACIN SUCCINATE
     Route: 065

REACTIONS (2)
  - Drug ineffective [Unknown]
  - Product substitution issue [Unknown]
